FAERS Safety Report 23659598 (Version 1)
Quarter: 2024Q1

REPORT INFORMATION
  Report Type: Spontaneous
  Country: US (occurrence: US)
  Receive Date: 20240321
  Receipt Date: 20240321
  Transmission Date: 20240409
  Serious: No
  Sender: FDA-Public Use
  Company Number: US-MYLANLABS-2024M1022046

PATIENT
  Sex: Female
  Weight: 83.9 kg

DRUGS (1)
  1. GABAPENTIN [Suspect]
     Active Substance: GABAPENTIN
     Indication: Arthritis
     Dosage: UNK
     Route: 065

REACTIONS (1)
  - Off label use [Unknown]
